FAERS Safety Report 10208762 (Version 1)
Quarter: 2014Q2

REPORT INFORMATION
  Report Type: Spontaneous
  Country: US (occurrence: US)
  Receive Date: 20140530
  Receipt Date: 20140530
  Transmission Date: 20141212
  Serious: Yes (Other)
  Sender: FDA-Public Use
  Company Number: US-ASTRAZENECA-2014SE35887

PATIENT
  Sex: Female

DRUGS (8)
  1. LISINOPRIL [Suspect]
     Indication: HYPERTENSION
     Route: 048
  2. NEXIUM [Suspect]
     Indication: GASTROOESOPHAGEAL REFLUX DISEASE
     Route: 048
     Dates: start: 2007
  3. PRILOSEC OTC [Suspect]
     Indication: GASTROOESOPHAGEAL REFLUX DISEASE
     Dosage: DAILY
     Route: 048
     Dates: start: 2007, end: 2007
  4. IBUPROFEN [Concomitant]
     Indication: ARTHRITIS
     Route: 048
  5. IRON [Concomitant]
     Route: 048
  6. ATORVASTATIN [Concomitant]
     Indication: BLOOD CHOLESTEROL
     Route: 048
  7. ALLOPURINOL [Concomitant]
     Indication: GOUT
     Route: 048
  8. FLEXERIL [Concomitant]
     Indication: MUSCLE SPASMS
     Route: 048
     Dates: start: 2005

REACTIONS (9)
  - Injury [Not Recovered/Not Resolved]
  - Carpal tunnel syndrome [Unknown]
  - Adverse drug reaction [Recovered/Resolved]
  - Chest discomfort [Recovered/Resolved]
  - Chest pain [Recovered/Resolved]
  - Hypertension [Not Recovered/Not Resolved]
  - Arthropathy [Not Recovered/Not Resolved]
  - Arthralgia [Not Recovered/Not Resolved]
  - Drug ineffective [Unknown]
